FAERS Safety Report 16347582 (Version 1)
Quarter: 2019Q2

REPORT INFORMATION
  Report Type: Spontaneous
  Country: US (occurrence: US)
  Receive Date: 20190523
  Receipt Date: 20190523
  Transmission Date: 20190711
  Serious: No
  Sender: FDA-Public Use
  Company Number: US-SUNOVION-2019SUN001962

PATIENT
  Sex: Female
  Weight: 52.15 kg

DRUGS (2)
  1. LATUDA [Suspect]
     Active Substance: LURASIDONE HYDROCHLORIDE
     Dosage: 60 MG
     Route: 048
  2. LATUDA [Suspect]
     Active Substance: LURASIDONE HYDROCHLORIDE
     Dosage: 40 MG
     Route: 048

REACTIONS (7)
  - Weight increased [Unknown]
  - Product administration error [Unknown]
  - Constipation [Unknown]
  - Increased appetite [Unknown]
  - Sleep disorder [Unknown]
  - Restlessness [Unknown]
  - Feeling abnormal [Unknown]
